FAERS Safety Report 6375530-6 (Version None)
Quarter: 2009Q3

REPORT INFORMATION
  Report Type: 
  Country: None (occurrence: None)
  Receive Date: 20090924
  Receipt Date: 20090911
  Transmission Date: 20100115
  Serious: Yes (Hospitalization)
  Sender: FDA-Public Use
  Company Number: US-ELI_LILLY_AND_COMPANY-US200909002915

PATIENT
  Sex: Female

DRUGS (4)
  1. CYMBALTA [Suspect]
     Indication: PAIN
  2. FORTEO [Suspect]
     Dates: start: 20090818
  3. ANTIHYPERTENSIVE AGENT [Concomitant]
  4. PRILOSEC [Concomitant]

REACTIONS (6)
  - ASTHENIA [None]
  - BLOOD PRESSURE INCREASED [None]
  - DIZZINESS [None]
  - HOSPITALISATION [None]
  - OFF LABEL USE [None]
  - PAIN [None]
